FAERS Safety Report 5775866-3 (Version None)
Quarter: 2008Q2

REPORT INFORMATION
  Report Type: 
  Country: None (occurrence: None)
  Receive Date: 20080617
  Receipt Date: 20080611
  Transmission Date: 20081010
  Serious: Yes (Other)
  Sender: FDA-Public Use
  Company Number: PL-ABBOTT-08P-129-0450594-00

PATIENT
  Age: 63 Year
  Sex: Male
  Weight: 84 kg

DRUGS (6)
  1. TARKA [Suspect]
     Indication: HYPERTENSION
     Route: 048
     Dates: start: 20070619
  2. LOSARTAN POTASSIUM [Concomitant]
     Indication: DRUG USE FOR UNKNOWN INDICATION
     Dates: start: 20060612
  3. INDAPAMIDE [Concomitant]
     Indication: DRUG USE FOR UNKNOWN INDICATION
     Dates: start: 20050101
  4. METOPROLOL SUCCINATE [Concomitant]
     Indication: DRUG USE FOR UNKNOWN INDICATION
     Dates: start: 20050101
  5. METFORMIN [Concomitant]
     Indication: DRUG USE FOR UNKNOWN INDICATION
  6. SULPHONYLUREA DRUG [Concomitant]
     Indication: DRUG USE FOR UNKNOWN INDICATION

REACTIONS (5)
  - HYPOTENSION [None]
  - MALAISE [None]
  - PANCREATIC CARCINOMA [None]
  - WEIGHT DECREASED [None]
  - YELLOW SKIN [None]
